FAERS Safety Report 9022507 (Version 1)
Quarter: 2013Q1

REPORT INFORMATION
  Report Type: Spontaneous
  Country: US (occurrence: US)
  Receive Date: 20130118
  Receipt Date: 20130118
  Transmission Date: 20140127
  Serious: No
  Sender: FDA-Public Use
  Company Number: US-PFIZER INC-2013016489

PATIENT
  Sex: Female

DRUGS (3)
  1. XELJANZ [Suspect]
     Dosage: UNK
  2. PLAQUENIL [Suspect]
     Dosage: UNK
  3. PRED /00016201/ [Suspect]
     Dosage: UNK

REACTIONS (3)
  - Dyspepsia [Recovered/Resolved]
  - Therapeutic response unexpected [Unknown]
  - Rhinorrhoea [Unknown]
